FAERS Safety Report 10427814 (Version 1)
Quarter: 2014Q3

REPORT INFORMATION
  Report Type: Spontaneous
  Country: BR (occurrence: BR)
  Receive Date: 20140903
  Receipt Date: 20140903
  Transmission Date: 20150326
  Serious: Yes (Hospitalization)
  Sender: FDA-Public Use
  Company Number: BR-ASTRAZENECA-2014SE64764

PATIENT
  Sex: Male

DRUGS (6)
  1. BRILINTA [Suspect]
     Active Substance: TICAGRELOR
     Indication: ANGIOPLASTY
     Route: 048
     Dates: start: 201402
  2. ARADOIS [Concomitant]
     Active Substance: LOSARTAN POTASSIUM
     Route: 048
  3. COMBERE (NOT MATCH) [Concomitant]
  4. METFORMIN [Suspect]
     Active Substance: METFORMIN HYDROCHLORIDE
     Route: 048
  5. HYDROCHLOROTHIAZIDE (NON AZ) [Suspect]
     Active Substance: HYDROCHLOROTHIAZIDE
     Route: 048
  6. CLORODIAZEL (NOT MATCH) [Concomitant]

REACTIONS (1)
  - Testicular injury [Unknown]

NARRATIVE: CASE EVENT DATE: 20140825
